FAERS Safety Report 5855740-4 (Version None)
Quarter: 2008Q3

REPORT INFORMATION
  Report Type: 
  Country: None (occurrence: None)
  Receive Date: 20080821
  Receipt Date: 20080821
  Transmission Date: 20090109
  Serious: No
  Sender: FDA-Public Use
  Company Number: None

PATIENT
  Age: 9 Year
  Sex: Male

DRUGS (3)
  1. ISONIAZID [Suspect]
     Dates: start: 20060301, end: 20060630
  2. TYLENOL (CAPLET) [Concomitant]
  3. VITAMIN K TAB [Concomitant]

REACTIONS (5)
  - BLOOD ALKALINE PHOSPHATASE INCREASED [None]
  - BLOOD BILIRUBIN INCREASED [None]
  - DECREASED APPETITE [None]
  - HEPATOCELLULAR INJURY [None]
  - JAUNDICE [None]
